FAERS Safety Report 7070264-7 (Version None)
Quarter: 2010Q4

REPORT INFORMATION
  Report Type: 
  Country: None (occurrence: None)
  Receive Date: 20101028
  Receipt Date: 20100927
  Transmission Date: 20110411
  Serious: No
  Sender: FDA-Public Use
  Company Number: US-WYE-H17791710

PATIENT
  Sex: Female
  Weight: 63.56 kg

DRUGS (2)
  1. PANTOPRAZOLE [Suspect]
     Indication: GASTROOESOPHAGEAL REFLUX DISEASE
     Dates: end: 20100901
  2. LIPITOR [Concomitant]

REACTIONS (5)
  - CHEST PAIN [None]
  - DRUG INEFFECTIVE [None]
  - FEELING ABNORMAL [None]
  - PALPITATIONS [None]
  - PRODUCT SUBSTITUTION ISSUE [None]
